FAERS Safety Report 4492775-0 (Version None)
Quarter: 2004Q4

REPORT INFORMATION
  Report Type: 
  Country: None (occurrence: None)
  Receive Date: 20041102
  Receipt Date: 20041020
  Transmission Date: 20050328
  Serious: Yes (Hospitalization)
  Sender: FDA-Public Use
  Company Number: B0335233A

PATIENT
  Age: 49 Year
  Sex: Male
  Weight: 67.8581 kg

DRUGS (6)
  1. FORTAZ [Suspect]
     Indication: BRAIN ABSCESS
     Dosage: 2 GRAM(S)/INTRAVENOUS INFUSION
     Route: 042
     Dates: start: 20040415, end: 20040508
  2. LEXIN TABLET (LEXIN) [Suspect]
     Indication: CONVULSION PROPHYLAXIS
     Dosage: ORAL
     Route: 048
     Dates: start: 20040405, end: 20040503
  3. CARBENIN (CARBENIN) [Suspect]
     Indication: BRAIN ABSCESS
     Dosage: 4 GRAM(S)/PER DAY/INTRAVENOUS INFUS
     Dates: start: 20040415, end: 20040508
  4. GLYCERIN [Concomitant]
  5. HYDROCORTISONE NA SUCC. [Concomitant]
  6. GLUTATHIONE [Concomitant]

REACTIONS (10)
  - ALANINE AMINOTRANSFERASE INCREASED [None]
  - ASPARTATE AMINOTRANSFERASE INCREASED [None]
  - BLOOD LACTATE DEHYDROGENASE INCREASED [None]
  - DRUG ERUPTION [None]
  - DRUG HYPERSENSITIVITY [None]
  - ERYTHEMA [None]
  - GAMMA-GLUTAMYLTRANSFERASE INCREASED [None]
  - HEPATIC FUNCTION ABNORMAL [None]
  - LIVER DISORDER [None]
  - PYREXIA [None]
